FAERS Safety Report 10041427 (Version 1)
Quarter: 2014Q1

REPORT INFORMATION
  Report Type: Spontaneous
  Country: US (occurrence: None)
  Receive Date: 20140326
  Receipt Date: 20140326
  Transmission Date: 20141002
  Serious: Yes (Hospitalization)
  Sender: FDA-Public Use
  Company Number: None

PATIENT
  Age: 91 Year
  Sex: Male
  Weight: 68.2 kg

DRUGS (4)
  1. FERROUS SULFATE [Suspect]
     Indication: ANAEMIA
     Route: 048
     Dates: start: 20130315, end: 20140325
  2. COGENTIN [Suspect]
     Indication: EXTRAPYRAMIDAL DISORDER
     Route: 048
     Dates: start: 20121114, end: 20131220
  3. TEGRETOL [Concomitant]
  4. INVEGA [Concomitant]

REACTIONS (5)
  - Intestinal obstruction [None]
  - Postoperative fever [None]
  - Gastrointestinal sounds abnormal [None]
  - Post procedural complication [None]
  - Mental status changes [None]
